FAERS Safety Report 8947825 (Version 2)
Quarter: 2013Q1

REPORT INFORMATION
  Report Type: Spontaneous
  Country: DK (occurrence: None)
  Receive Date: 20121127
  Receipt Date: 20121231
  Transmission Date: 20140127
  Serious: Yes (Other)
  Sender: FDA-Public Use
  Company Number: 2012MA013523

PATIENT
  Age: 70 Year
  Sex: Male

DRUGS (13)
  1. BISOPROLOL FUMARATE HYDROCHLOROTHIAZIDE [Suspect]
     Indication: HYPERTENSION
  2. DOXAZOSIN MESYLATE [Suspect]
     Indication: HYPERTENSION
  3. ACCUPRO [Suspect]
     Indication: HYPERTENSION
  4. DAPSONE [Concomitant]
  5. IBUPROFEN [Concomitant]
  6. OMEPRAZOLE [Concomitant]
  7. AMITRIPTYLINE [Concomitant]
  8. SIMVASTATIN [Concomitant]
  9. FERROUS GLUCONATE [Concomitant]
  10. ACETYLSALICYLIC ACID [Concomitant]
  11. PARACETAMOL [Concomitant]
  12. ALLOPURINOL [Concomitant]
  13. VIOXX [Concomitant]

REACTIONS (2)
  - Palpitations [None]
  - Blood pressure inadequately controlled [None]
